FAERS Safety Report 5023600-7 (Version None)
Quarter: 2006Q2

REPORT INFORMATION
  Report Type: 
  Country: None (occurrence: None)
  Receive Date: 20060606
  Receipt Date: 20060525
  Transmission Date: 20061013
  Serious: Yes (Other)
  Sender: FDA-Public Use
  Company Number: GBWYE653625MAY06

PATIENT
  Age: 39 Year
  Sex: Female

DRUGS (1)
  1. EFFEXOR [Suspect]
     Dosage: RANGE OF DOSES BETWEEN 75MG AND 300MG
     Dates: start: 20020101, end: 20050801

REACTIONS (2)
  - CARDIAC FAILURE [None]
  - HYPERTENSION [None]
